FAERS Safety Report 7559180-1 (Version None)
Quarter: 2011Q2

REPORT INFORMATION
  Report Type: 
  Country: None (occurrence: None)
  Receive Date: 20110621
  Receipt Date: 20110617
  Transmission Date: 20111010
  Serious: Yes (Other)
  Sender: FDA-Public Use
  Company Number: US-PFIZER INC-2011134060

PATIENT
  Sex: Female

DRUGS (10)
  1. TRILEPTAL [Concomitant]
     Indication: GLUTAMATE DEHYDROGENASE LEVEL ABNORMAL
     Dosage: 150 MG, 2X/DAY
     Route: 048
  2. EFFEXOR [Suspect]
     Indication: DEPRESSION
     Dosage: 75 MG, DAILY
  3. ASENAPINE [Suspect]
     Indication: AFFECTIVE DISORDER
     Dosage: 20 MG, AS NEEDED
     Route: 060
     Dates: start: 20110331
  4. KLONOPIN [Suspect]
     Indication: ANXIETY DISORDER
  5. XANAX [Suspect]
     Dosage: UNK
     Dates: end: 20110101
  6. EFFEXOR [Suspect]
     Indication: BIPOLAR DISORDER
     Dosage: DAILY
     Route: 048
  7. KLONOPIN [Suspect]
     Indication: MANIA
     Dosage: 1 MG, 2X/DAY
     Route: 048
     Dates: start: 20110603, end: 20110101
  8. EFFEXOR [Suspect]
     Indication: OBSESSIVE-COMPULSIVE DISORDER
     Dosage: 112.5 MG, DAILY
     Route: 048
  9. ABILIFY [Suspect]
     Indication: AFFECTIVE DISORDER
     Dosage: 2 MG, DAILY
     Route: 048
     Dates: start: 20110301
  10. KLONOPIN [Suspect]
     Indication: MUSCLE TIGHTNESS

REACTIONS (3)
  - WEIGHT INCREASED [None]
  - SEROTONIN SYNDROME [None]
  - MANIA [None]
